FAERS Safety Report 6858402-X (Version None)
Quarter: 2010Q3

REPORT INFORMATION
  Report Type: 
  Country: None (occurrence: None)
  Receive Date: 20100719
  Receipt Date: 20080207
  Transmission Date: 20110219
  Serious: No
  Sender: FDA-Public Use
  Company Number: US-PFIZER INC-2008013047

PATIENT
  Sex: Female
  Weight: 90.9 kg

DRUGS (4)
  1. CHANTIX [Suspect]
     Indication: SMOKING CESSATION THERAPY
     Dates: start: 20080101
  2. CLONAZEPAM [Concomitant]
  3. XANAX [Concomitant]
  4. PERCOCET [Concomitant]

REACTIONS (7)
  - APATHY [None]
  - DEPRESSION [None]
  - DIZZINESS [None]
  - FATIGUE [None]
  - FEELING ABNORMAL [None]
  - IRRITABILITY [None]
  - MALAISE [None]
